FAERS Safety Report 19984474 (Version 2)
Quarter: 2021Q4

REPORT INFORMATION
  Report Type: Spontaneous
  Country: US (occurrence: US)
  Receive Date: 20211021
  Receipt Date: 20211028
  Transmission Date: 20220303
  Serious: Yes (Hospitalization)
  Sender: FDA-Public Use
  Company Number: US-TEVA-2021-US-1966681

PATIENT
  Age: 64 Year
  Sex: Female

DRUGS (7)
  1. SULFAMETHOXAZOLE\TRIMETHOPRIM [Suspect]
     Active Substance: SULFAMETHOXAZOLE\TRIMETHOPRIM
     Indication: Nocardiosis
     Dosage: 2 DS
     Route: 065
  2. SULFAMETHOXAZOLE\TRIMETHOPRIM [Suspect]
     Active Substance: SULFAMETHOXAZOLE\TRIMETHOPRIM
     Indication: Pneumonia
  3. ASCORBIC ACID [Suspect]
     Active Substance: ASCORBIC ACID
     Indication: Supplementation therapy
     Route: 065
  4. CEFPODOXIME [Concomitant]
     Active Substance: CEFPODOXIME
     Indication: Nocardiosis
     Route: 065
  5. CEFPODOXIME [Concomitant]
     Active Substance: CEFPODOXIME
     Indication: Pneumonia
  6. METFORMIN [Concomitant]
     Active Substance: METFORMIN HYDROCHLORIDE
     Indication: Type 2 diabetes mellitus
     Dosage: EXTENDED RELEASE
     Route: 065
  7. GLIPIZIDE [Concomitant]
     Active Substance: GLIPIZIDE
     Indication: Type 2 diabetes mellitus
     Dosage: 10 MILLIGRAM DAILY;
     Route: 065

REACTIONS (3)
  - Calculus urinary [Recovered/Resolved]
  - Haematuria [Unknown]
  - Hydronephrosis [Unknown]
